FAERS Safety Report 15719659 (Version 1)
Quarter: 2018Q4

REPORT INFORMATION
  Report Type: Spontaneous
  Country: US (occurrence: US)
  Receive Date: 20181213
  Receipt Date: 20181213
  Transmission Date: 20190205
  Serious: No
  Sender: FDA-Public Use
  Company Number: US-BAYER-2018-230201

PATIENT
  Age: 81 Year
  Sex: Male
  Weight: 100 kg

DRUGS (1)
  1. MIRALAX [Suspect]
     Active Substance: POLYETHYLENE GLYCOL 3350
     Indication: CONSTIPATION PROPHYLAXIS
     Dosage: UNK, QD (THIRD OF A CAPFUL 2-3 TIMES)
     Route: 048
     Dates: start: 20181201

REACTIONS (5)
  - Circumstance or information capable of leading to medication error [Unknown]
  - Product use issue [Unknown]
  - Product use in unapproved indication [Unknown]
  - Wrong technique in product usage process [Unknown]
  - Off label use [Unknown]

NARRATIVE: CASE EVENT DATE: 20181201
